FAERS Safety Report 9270413 (Version 1)
Quarter: 2013Q2

REPORT INFORMATION
  Report Type: Report from Study
  Country: US (occurrence: US)
  Receive Date: 20130503
  Receipt Date: 20130503
  Transmission Date: 20140414
  Serious: Yes (Hospitalization, Other)
  Sender: FDA-Public Use
  Company Number: US-ABBOTT-13P-163-1081681-00

PATIENT
  Sex: Female

DRUGS (9)
  1. HUMIRA [Suspect]
     Indication: RHEUMATOID ARTHRITIS
     Route: 058
     Dates: start: 200605
  2. UNKNOWN MEDICATION [Concomitant]
     Indication: THROMBOSIS
  3. METHOTREXATE [Concomitant]
     Indication: RHEUMATOID ARTHRITIS
  4. FOLIC ACID [Concomitant]
     Indication: VITAMIN SUPPLEMENTATION
  5. UNKNOWN MEDICATION [Concomitant]
     Indication: PAIN
  6. UNKNOWN EYE MEDICATION [Concomitant]
     Indication: VISUAL ACUITY REDUCED
  7. UNKNOWN EYE DROPS [Concomitant]
     Indication: VISUAL ACUITY REDUCED
  8. UNKNOWN MEDICATION [Concomitant]
     Indication: CARDIAC DISORDER
  9. UNKNOWN MEDICATION [Concomitant]
     Indication: ANXIETY

REACTIONS (15)
  - Visual acuity reduced [Recovering/Resolving]
  - Arteriosclerosis coronary artery [Recovering/Resolving]
  - Deep vein thrombosis [Not Recovered/Not Resolved]
  - Hand deformity [Recovering/Resolving]
  - Osteoarthritis [Recovering/Resolving]
  - Cerebrovascular accident [Recovered/Resolved with Sequelae]
  - Tendon disorder [Unknown]
  - Musculoskeletal stiffness [Not Recovered/Not Resolved]
  - Fall [Recovered/Resolved]
  - Visual acuity reduced [Not Recovered/Not Resolved]
  - Hypoacusis [Not Recovered/Not Resolved]
  - Memory impairment [Not Recovered/Not Resolved]
  - Balance disorder [Not Recovered/Not Resolved]
  - Arthropathy [Not Recovered/Not Resolved]
  - Arthritis [Unknown]
